FAERS Safety Report 8992381 (Version 2)
Quarter: 2013Q1

REPORT INFORMATION
  Report Type: Spontaneous
  Country: SE (occurrence: SE)
  Receive Date: 20121231
  Receipt Date: 20130204
  Transmission Date: 20140127
  Serious: Yes (Hospitalization, Other)
  Sender: FDA-Public Use
  Company Number: SE-JNJFOC-20121211110

PATIENT
  Sex: 0

DRUGS (7)
  1. RISPERIDONE [Suspect]
     Indication: MENTAL DISORDER
     Route: 048
  2. HALOPERIDOL [Suspect]
     Indication: MENTAL DISORDER
     Route: 048
  3. CHLORPROMAZINE [Suspect]
     Indication: MENTAL DISORDER
     Route: 048
  4. LORAZEPAM [Suspect]
     Indication: MENTAL DISORDER
     Route: 065
  5. DIPHENHYDRAMINE [Suspect]
     Indication: MENTAL DISORDER
     Route: 048
  6. ANTIEPILEPTIC MEDICATION [Concomitant]
     Route: 065
  7. ANTI DEPRESSANTS [Concomitant]
     Route: 065

REACTIONS (2)
  - Neuroleptic malignant syndrome [Unknown]
  - Rhabdomyolysis [Unknown]
